FAERS Safety Report 16205824 (Version 2)
Quarter: 2019Q2

REPORT INFORMATION
  Report Type: Spontaneous
  Country: HR (occurrence: HR)
  Receive Date: 20190417
  Receipt Date: 20190525
  Transmission Date: 20190711
  Serious: Yes (Life-Threatening, Hospitalization, Other)
  Sender: FDA-Public Use
  Company Number: HR-B.I. PHARMACEUTICALS,INC./RIDGEFIELD-2019-BI-017347

PATIENT
  Age: 80 Year
  Sex: Female

DRUGS (1)
  1. PRADAXA [Suspect]
     Active Substance: DABIGATRAN ETEXILATE MESYLATE
     Indication: ATRIAL FIBRILLATION
     Route: 065
     Dates: start: 2018, end: 20190410

REACTIONS (6)
  - NIH stroke scale abnormal [Unknown]
  - Facial paresis [Unknown]
  - Hemiparesis [Unknown]
  - Ischaemic stroke [Recovered/Resolved]
  - Aphasia [Unknown]
  - Apraxia [Unknown]

NARRATIVE: CASE EVENT DATE: 20190410
